FAERS Safety Report 10012256 (Version 1)
Quarter: 2014Q1

REPORT INFORMATION
  Report Type: Spontaneous
  Country: DE (occurrence: DE)
  Receive Date: 20140314
  Receipt Date: 20140314
  Transmission Date: 20141002
  Serious: Yes (Other)
  Sender: FDA-Public Use
  Company Number: 2014SP001391

PATIENT
  Age: 38 Year
  Sex: Female

DRUGS (3)
  1. CISPLATIN [Suspect]
     Indication: CERVIX CARCINOMA
  2. PACLITAXEL [Suspect]
     Indication: CERVIX CARCINOMA
  3. IFOSFAMIDE [Suspect]
     Indication: CERVIX CARCINOMA

REACTIONS (1)
  - Haematotoxicity [Unknown]
